FAERS Safety Report 6425828-8 (Version None)
Quarter: 2009Q4

REPORT INFORMATION
  Report Type: 
  Country: None (occurrence: None)
  Receive Date: 20091103
  Receipt Date: 20090203
  Transmission Date: 20100525
  Serious: No
  Sender: FDA-Public Use
  Company Number: US-ABBOTT-09P-163-0502010-00

PATIENT
  Sex: Female
  Weight: 86.26 kg

DRUGS (1)
  1. BIAXIN [Suspect]
     Indication: SINUSITIS

REACTIONS (1)
  - HEART RATE INCREASED [None]
